FAERS Safety Report 6470561-X (Version None)
Quarter: 2009Q4

REPORT INFORMATION
  Report Type: 
  Country: None (occurrence: None)
  Receive Date: 20091203
  Receipt Date: 20091123
  Transmission Date: 20100525
  Serious: Yes (Death, Hospitalization)
  Sender: FDA-Public Use
  Company Number: FR-PFIZER INC-2009267336

PATIENT
  Age: 66 Year
  Sex: Male

DRUGS (14)
  1. EPIRUBICIN HCL [Suspect]
     Indication: GASTRIC CANCER
     Dosage: 80 MG
     Dates: start: 20080327
  2. CISPLATIN [Suspect]
     Indication: GASTRIC CANCER
     Dosage: 95 MG
     Dates: start: 20080327
  3. CAPECITABINE [Suspect]
     Indication: GASTRIC CANCER
     Dosage: 27000 MG
     Dates: start: 20080327
  4. XANAX [Concomitant]
     Indication: ANXIETY
     Dosage: 0.25 MG, 3X/DAY, 3 TABLETS
     Route: 048
  5. PARACETAMOL [Concomitant]
     Indication: PAIN
     Dosage: 4 G, AS NEEDED
     Route: 048
     Dates: start: 20080327
  6. ZOPHREN [Concomitant]
     Indication: NAUSEA
     Dosage: 2 DF, 1X/DAY
     Route: 048
     Dates: start: 20080327
  7. KARDEGIC [Concomitant]
     Indication: HAEMOSTASIS
     Dosage: 1 DF, 1X/DAY
     Route: 048
  8. NEXIUM [Concomitant]
     Indication: ASCITES
     Dosage: 1 DF, 2X/DAY
     Route: 048
  9. CRESTOR [Concomitant]
     Indication: HYPERLIPIDAEMIA
     Dosage: 1 DF, 1X/DAY
     Route: 048
  10. DILTIAZEM [Concomitant]
     Indication: HYPERTENSION
     Dosage: 1 DF, 1X/DAY
     Route: 048
  11. ATHYMIL [Concomitant]
     Indication: DEPRESSION
     Dosage: 1 DF, 1X/DAY
     Route: 048
  12. HAVLANE [Concomitant]
     Indication: INSOMNIA
     Dosage: 1 DF, 1X/DAY
     Route: 048
  13. XATRAL - SLOW RELEASE [Concomitant]
     Indication: BENIGN PROSTATIC HYPERPLASIA
     Dosage: 1 DF, 1X/DAY
     Route: 048
  14. FORLAX [Concomitant]
     Indication: CONSTIPATION
     Dosage: 2 POWDER SACHETS AS NEEDED
     Route: 048
     Dates: start: 20080327

REACTIONS (4)
  - DISEASE PROGRESSION [None]
  - GASTRIC CANCER [None]
  - MALIGNANT NEOPLASM PROGRESSION [None]
  - SHOCK [None]
